FAERS Safety Report 18202603 (Version 1)
Quarter: 2020Q3

REPORT INFORMATION
  Report Type: Spontaneous
  Country: US (occurrence: US)
  Receive Date: 20200827
  Receipt Date: 20200827
  Transmission Date: 20201103
  Serious: Yes (Death)
  Sender: FDA-Public Use
  Company Number: None

PATIENT
  Age: 87 Year
  Sex: Female
  Weight: 79 kg

DRUGS (1)
  1. REMDESIVIR. [Suspect]
     Active Substance: REMDESIVIR
     Route: 042
     Dates: start: 20200706, end: 20200706

REACTIONS (8)
  - Anxiety [None]
  - Acute kidney injury [None]
  - Depression [None]
  - Respiratory failure [None]
  - Hyperlipidaemia [None]
  - Cardio-respiratory arrest [None]
  - Dementia [None]
  - Hypertension [None]

NARRATIVE: CASE EVENT DATE: 20200707
